FAERS Safety Report 13559922 (Version 1)
Quarter: 2017Q2

REPORT INFORMATION
  Report Type: Spontaneous
  Country: US (occurrence: US)
  Receive Date: 20170518
  Receipt Date: 20170518
  Transmission Date: 20170830
  Serious: Yes (Disabling, Other)
  Sender: FDA-Public Use
  Company Number: US-REGENERON PHARMACEUTICALS, INC.-2017-15743

PATIENT

DRUGS (3)
  1. EYLEA [Suspect]
     Active Substance: AFLIBERCEPT
     Indication: NEOVASCULAR AGE-RELATED MACULAR DEGENERATION
     Dosage: RECEIVED INJECTIONS FOR APPROXIMATELY 2 YEARS
  2. LUCENTIS [Concomitant]
     Active Substance: RANIBIZUMAB
     Indication: EYE OEDEMA
     Dosage: UNK UNK, MONTHLY
  3. EYLEA [Suspect]
     Active Substance: AFLIBERCEPT
     Indication: EYE OEDEMA
     Dosage: RESTARTED APPROX. 6 MONTHS AGO; EVERY 2 MONTHS

REACTIONS (2)
  - Drug ineffective [Recovering/Resolving]
  - Blindness unilateral [Unknown]
